FAERS Safety Report 6477642-5 (Version None)
Quarter: 2009Q4

REPORT INFORMATION
  Report Type: 
  Country: None (occurrence: None)
  Receive Date: 20091202
  Receipt Date: 20091118
  Transmission Date: 20100525
  Serious: Yes (Death)
  Sender: FDA-Public Use
  Company Number: JHP200900386

PATIENT
  Age: 29 Year
  Sex: Male

DRUGS (4)
  1. KETALAR [Suspect]
     Indication: DRUG ABUSE
  2. METHYLENEDIOXYMETHAMPHETAMINE (METHYLENEDIOXYMETHAMPHETAMIN0 [Suspect]
     Indication: DRUG ABUSE
  3. ETHANOL (ETHANOL) [Suspect]
  4. FLURAZEPAM [Suspect]

REACTIONS (3)
  - ACCIDENTAL DEATH [None]
  - DRUG TOXICITY [None]
  - FALL [None]
